FAERS Safety Report 6308342-X (Version None)
Quarter: 2009Q3

REPORT INFORMATION
  Report Type: 
  Country: None (occurrence: None)
  Receive Date: 20090810
  Receipt Date: 20090727
  Transmission Date: 20100115
  Serious: Yes (Hospitalization, Other)
  Sender: FDA-Public Use
  Company Number: 2009-02251

PATIENT
  Age: 47 Year
  Sex: Male
  Weight: 91.2 kg

DRUGS (24)
  1. VELCADE [Suspect]
     Indication: KIDNEY TRANSPLANT REJECTION
     Dates: start: 20090414, end: 20090423
  2. PROGRAF [Concomitant]
  3. PREDNISONE [Concomitant]
  4. MYCOPHENOLATE MOFETIL [Concomitant]
  5. BACTRIM [Concomitant]
  6. VALCYTE [Concomitant]
  7. GRANULOCYTE MACROPHAGE COLONY STIM FACTOR (GRANULOCYTE MACROPHAGE COLO [Concomitant]
  8. LEUKINE [Concomitant]
  9. ASPIRIN [Concomitant]
  10. AMLODIPINE [Concomitant]
  11. SENSIPAR [Concomitant]
  12. METOPROLOL SUCCINATE [Concomitant]
  13. COLACE (DOCUSATE  SODIUM) [Concomitant]
  14. VITAMIN B12 [Concomitant]
  15. NEXIUM [Concomitant]
  16. FOLIC ACID [Concomitant]
  17. NYSTATIN [Concomitant]
  18. PYRIDOXINE (PYRIDOXINE) [Concomitant]
  19. AMBIEN [Concomitant]
  20. NORVASC [Concomitant]
  21. COUMADIN [Concomitant]
  22. FOLTX (FOLIC ACID, CYANOCOBALAMIN, PYRIDOXINE) [Concomitant]
  23. SODIUM BICARBONATE IN PLASTIC CONTAINER [Concomitant]
  24. PENTAMIDINE (PENTAMIDINE) [Concomitant]

REACTIONS (20)
  - ANTICOAGULATION DRUG LEVEL ABOVE THERAPEUTIC [None]
  - ARTHRALGIA [None]
  - ASTHENIA [None]
  - BONE PAIN [None]
  - DIARRHOEA [None]
  - FEBRILE NEUTROPENIA [None]
  - HAEMOLYTIC URAEMIC SYNDROME [None]
  - HEADACHE [None]
  - HYPOTENSION [None]
  - HYPOVOLAEMIA [None]
  - LIVER FUNCTION TEST ABNORMAL [None]
  - METABOLIC ACIDOSIS [None]
  - NAUSEA [None]
  - PANCYTOPENIA [None]
  - PELVIC PAIN [None]
  - PROCTALGIA [None]
  - RENAL FAILURE ACUTE [None]
  - SECONDARY HYPERTHYROIDISM [None]
  - THROMBOTIC THROMBOCYTOPENIC PURPURA [None]
  - VOMITING [None]
